FAERS Safety Report 10638741 (Version 1)
Quarter: 2014Q4

REPORT INFORMATION
  Report Type: Spontaneous
  Country: US (occurrence: US)
  Receive Date: 20141208
  Receipt Date: 20141208
  Transmission Date: 20150529
  Serious: Yes (Other)
  Sender: FDA-Public Use
  Company Number: US-PFIZER INC-2014332835

PATIENT
  Age: 62 Year
  Sex: Male

DRUGS (1)
  1. SUTENT [Suspect]
     Active Substance: SUNITINIB MALATE
     Dosage: UNK, CYCLIC (28 DAYS ON, 14 DAYS BREAK)

REACTIONS (6)
  - Nausea [Unknown]
  - Hypersomnia [Unknown]
  - Vomiting [Unknown]
  - Anaemia [Not Recovered/Not Resolved]
  - Diverticulitis [Unknown]
  - Dysphagia [Unknown]
